FAERS Safety Report 7343574-3 (Version None)
Quarter: 2011Q1

REPORT INFORMATION
  Report Type: 
  Country: None (occurrence: None)
  Receive Date: 20110310
  Receipt Date: 20100525
  Transmission Date: 20110831
  Serious: No
  Sender: FDA-Public Use
  Company Number: A0861201A

PATIENT
  Age: 62 Year
  Sex: Male

DRUGS (1)
  1. NICORETTE (MINT) [Suspect]
     Dates: start: 20100523, end: 20100524

REACTIONS (7)
  - ILL-DEFINED DISORDER [None]
  - RASH [None]
  - URTICARIA [None]
  - BLISTER [None]
  - MALAISE [None]
  - HYPERSENSITIVITY [None]
  - DYSPNOEA [None]
